FAERS Safety Report 20703024 (Version 2)
Quarter: 2022Q2

REPORT INFORMATION
  Report Type: Spontaneous
  Country: JP (occurrence: JP)
  Receive Date: 20220413
  Receipt Date: 20220415
  Transmission Date: 20220721
  Serious: Yes (Other)
  Sender: FDA-Public Use
  Company Number: JP-SUN PHARMACEUTICAL INDUSTRIES LTD-2022RR-332544

PATIENT
  Sex: Female
  Weight: 47 kg

DRUGS (1)
  1. ASPIRIN [Suspect]
     Active Substance: ASPIRIN
     Indication: Headache
     Dosage: 1320 MILLIGRAM, TWO TABLETS
     Route: 065

REACTIONS (2)
  - Tubulointerstitial nephritis and uveitis syndrome [Unknown]
  - Pyrexia [Unknown]
